FAERS Safety Report 9245310 (Version 1)
Quarter: 2013Q2

REPORT INFORMATION
  Report Type: Report from Study
  Country: ID (occurrence: ID)
  Receive Date: 20130422
  Receipt Date: 20130422
  Transmission Date: 20140414
  Serious: Yes (Death)
  Sender: FDA-Public Use
  Company Number: ID-ROCHE-1216590

PATIENT
  Age: 53 Year
  Sex: Female

DRUGS (2)
  1. AVASTIN [Suspect]
     Indication: COLORECTAL CANCER METASTATIC
     Route: 042
     Dates: start: 20130105
  2. XELODA [Suspect]
     Indication: COLORECTAL CANCER METASTATIC
     Route: 048

REACTIONS (1)
  - Depressed level of consciousness [Fatal]
